FAERS Safety Report 11541771 (Version 1)
Quarter: 2015Q3

REPORT INFORMATION
  Report Type: Spontaneous
  Country: CA (occurrence: CA)
  Receive Date: 20150923
  Receipt Date: 20150923
  Transmission Date: 20151125
  Serious: Yes (Life-Threatening, Hospitalization)
  Sender: FDA-Public Use
  Company Number: CA-TEVA-595029ACC

PATIENT
  Sex: Male

DRUGS (1)
  1. AMOXICILLIN. [Suspect]
     Active Substance: AMOXICILLIN
     Indication: BRONCHITIS
     Dosage: 1500 MILLIGRAM DAILY;
     Route: 048

REACTIONS (3)
  - Haemorrhoidal haemorrhage [Unknown]
  - Iron deficiency anaemia [Unknown]
  - Thrombocytopenia [Unknown]
